FAERS Safety Report 5833203-X (Version None)
Quarter: 2008Q3

REPORT INFORMATION
  Report Type: 
  Country: None (occurrence: None)
  Receive Date: 20080731
  Receipt Date: 20080717
  Transmission Date: 20090109
  Serious: Yes (Hospitalization)
  Sender: FDA-Public Use
  Company Number: 2008AL007658

PATIENT
  Age: 70 Year
  Sex: Female
  Weight: 87.9978 kg

DRUGS (1)
  1. DIGOXIN [Suspect]
     Indication: CARDIAC DISORDER
     Dosage: 0.25MG DAILY PO
     Route: 048

REACTIONS (5)
  - ARTHRITIS [None]
  - DYSPNOEA [None]
  - FATIGUE [None]
  - FEELING ABNORMAL [None]
  - HEART RATE DECREASED [None]
